FAERS Safety Report 8712688 (Version 3)
Quarter: 2012Q4

REPORT INFORMATION
  Report Type: 
  Country: US (occurrence: US)
  Receive Date: 20120808
  Receipt Date: 20120918
  Transmission Date: 20130627
  Serious: Yes (Hospitalization, Other)
  Sender: FDA-Public Use
  Company Number: US-BAYER-2012-078595

PATIENT
  Age: 19 Year
  Sex: Female
  Weight: 82 kg

DRUGS (12)
  1. OCELLA [Suspect]
     Indication: ACNE
     Dosage: UNK
     Dates: start: 2007, end: 201011
  2. OCELLA [Suspect]
     Indication: PREMENSTRUAL SYNDROME
  3. AZITHROMYCIN [Concomitant]
     Dosage: UNK
     Route: 048
     Dates: start: 20101028
  4. TYLENOL #3 [Concomitant]
     Dosage: UNK
     Route: 048
     Dates: start: 20101028
  5. TYLENOL [Concomitant]
     Indication: CHEST PAIN
     Dosage: UNK
     Route: 048
     Dates: start: 20101028
  6. MOTRIN [Concomitant]
     Dosage: UNK
     Route: 048
     Dates: start: 20101103
  7. MIDRIN [Concomitant]
     Dosage: UNK
     Route: 048
     Dates: start: 20101103
  8. FLUCONAZOLE [Concomitant]
  9. VITAMIN D2 [Concomitant]
     Dosage: UNK
     Dates: start: 20100908
  10. AMOXICILLIN [Concomitant]
     Dosage: UNK
     Dates: start: 2000, end: 20120803
  11. IBUPROFEN [Concomitant]
     Dosage: UNK
     Dates: start: 2010, end: 20120803
  12. UNSPECIFIED MEDICATION FOR MIGRAINE HEADACHES [Concomitant]
     Indication: MIGRAINE

REACTIONS (10)
  - Pulmonary embolism [None]
  - Deep vein thrombosis [None]
  - Myocardial infarction [None]
  - Cerebrovascular accident [None]
  - Gallbladder disorder [None]
  - Pain [None]
  - Injury [None]
  - Anxiety [None]
  - Anhedonia [None]
  - Fear [None]
